FAERS Safety Report 7090705-9 (Version None)
Quarter: 2010Q4

REPORT INFORMATION
  Report Type: 
  Country: None (occurrence: None)
  Receive Date: 20101109
  Receipt Date: 20090331
  Transmission Date: 20110411
  Serious: No
  Sender: FDA-Public Use
  Company Number: US-KINGPHARMUSA00001-K200900365

PATIENT
  Sex: Female
  Weight: 101.13 kg

DRUGS (4)
  1. FLECTOR [Suspect]
     Indication: ARTHRALGIA
     Dosage: 1 PATCH, BID
     Route: 061
     Dates: start: 20090101
  2. FLECTOR [Suspect]
     Indication: BACK PAIN
  3. DARVOCET [Concomitant]
     Indication: PAIN
     Dosage: UNK
     Route: 048
  4. LYRICA [Concomitant]
     Indication: PAIN IN EXTREMITY
     Dosage: UNK
     Route: 048

REACTIONS (1)
  - DRUG INEFFECTIVE [None]
